FAERS Safety Report 7815099-X (Version None)
Quarter: 2011Q4

REPORT INFORMATION
  Report Type: 
  Country: None (occurrence: None)
  Receive Date: 20111014
  Receipt Date: 20111014
  Transmission Date: 20120403
  Serious: Yes (Life-Threatening, Hospitalization)
  Sender: FDA-Public Use
  Company Number: None

PATIENT
  Age: 16 Year
  Sex: Male
  Weight: 68.038 kg

DRUGS (1)
  1. CEFDINIR [Suspect]
     Indication: INFECTION
     Dosage: 1 CAPSULE
     Route: 048
     Dates: start: 20111011, end: 20111012

REACTIONS (3)
  - URTICARIA [None]
  - PALPITATIONS [None]
  - DYSPNOEA [None]
